FAERS Safety Report 8195314-6 (Version None)
Quarter: 2012Q1

REPORT INFORMATION
  Report Type: 
  Country: None (occurrence: None)
  Receive Date: 20120308
  Receipt Date: 20120301
  Transmission Date: 20120608
  Serious: Yes (Other)
  Sender: FDA-Public Use
  Company Number: US-GLAXOSMITHKLINE-A0897512A

PATIENT
  Age: 52 Year
  Sex: Male

DRUGS (1)
  1. AVANDAMET [Suspect]
     Indication: DIABETES MELLITUS
     Route: 048
     Dates: start: 20090206, end: 20100805

REACTIONS (8)
  - CARDIAC ARREST [None]
  - PAIN [None]
  - FLUID OVERLOAD [None]
  - THROMBOSIS [None]
  - PULMONARY HYPERTENSION [None]
  - HEART INJURY [None]
  - FLUID RETENTION [None]
  - CEREBROVASCULAR ACCIDENT [None]
